FAERS Safety Report 8934394 (Version 1)
Quarter: 2012Q4

REPORT INFORMATION
  Report Type: 
  Country: US (occurrence: US)
  Receive Date: 20121129
  Receipt Date: 20121129
  Transmission Date: 20130627
  Serious: No
  Sender: FDA-Public Use
  Company Number: US-ASTRAZENECA-2012SE85391

PATIENT
  Age: 78 Year
  Sex: Female
  Weight: 99.8 kg

DRUGS (4)
  1. VIMOVO [Suspect]
     Indication: ARTHRITIS
     Dosage: 500 MG/20 MG, DAILY
     Route: 048
     Dates: start: 201210
  2. TOPROL XL [Suspect]
     Route: 048
     Dates: start: 201210
  3. PRAVACOHOL [Concomitant]
  4. BENICAR [Concomitant]

REACTIONS (1)
  - Nasopharyngitis [Unknown]
